FAERS Safety Report 5328761-8 (Version None)
Quarter: 2007Q2

REPORT INFORMATION
  Report Type: 
  Country: None (occurrence: None)
  Receive Date: 20070516
  Receipt Date: 20070516
  Transmission Date: 20071010
  Serious: Yes (Hospitalization)
  Sender: FDA-Public Use
  Company Number: None

PATIENT
  Age: 80 Year
  Sex: Female
  Weight: 58 kg

DRUGS (4)
  1. PHENYTOIN SODIUM CAP [Suspect]
     Indication: GRAND MAL CONVULSION
     Dosage: 400 MG AT BEDTIME PO
     Route: 048
     Dates: start: 20050101
  2. CYMBALTA [Suspect]
     Indication: DEMENTIA
     Dosage: 30 MG DAILY PO
     Route: 048
  3. GLYBURIDE [Concomitant]
  4. NAMENDA [Concomitant]

REACTIONS (5)
  - BALANCE DISORDER [None]
  - DRUG TOXICITY [None]
  - FALL [None]
  - NEUROPATHY PERIPHERAL [None]
  - NYSTAGMUS [None]
